FAERS Safety Report 5801719-8 (Version None)
Quarter: 2008Q3

REPORT INFORMATION
  Report Type: 
  Country: None (occurrence: None)
  Receive Date: 20080707
  Receipt Date: 20080630
  Transmission Date: 20090109
  Serious: Yes (Hospitalization)
  Sender: FDA-Public Use
  Company Number: B0527561A

PATIENT
  Age: 25 Year
  Sex: Female

DRUGS (1)
  1. LAMICTAL [Suspect]
     Dosage: 100MG PER DAY
     Route: 048
     Dates: start: 20080330, end: 20080523

REACTIONS (3)
  - CHOLANGIOLITIS [None]
  - HEPATITIS ACUTE [None]
  - JAUNDICE [None]
